FAERS Safety Report 8538930 (Version 10)
Quarter: 2013Q3

REPORT INFORMATION
  Report Type: Report from Study
  Country: US (occurrence: US)
  Receive Date: 20120501
  Receipt Date: 20130912
  Transmission Date: 20140515
  Serious: Yes (Hospitalization)
  Sender: FDA-Public Use
  Company Number: US-ROCHE-1063678

PATIENT
  Age: 61 Year
  Sex: Male
  Weight: 72.11 kg

DRUGS (7)
  1. PEG-INTERFERON ALFA 2A [Suspect]
     Indication: HEPATITIS C
     Route: 048
     Dates: start: 20111020, end: 20120315
  2. RIBAVIRIN [Suspect]
     Indication: HEPATITIS C
     Route: 048
     Dates: start: 20111020, end: 20120325
  3. BLINDED ALISPORIVIR [Suspect]
     Indication: HEPATITIS C
     Route: 048
     Dates: start: 20111020, end: 20120325
  4. GABAPENTIN [Concomitant]
     Route: 065
     Dates: start: 20111110
  5. FOSAMAX [Concomitant]
     Route: 065
     Dates: start: 20111110
  6. ACYCLOVIR [Concomitant]
     Route: 065
     Dates: start: 20120105, end: 20120112
  7. LIDEX [Concomitant]
     Route: 065
     Dates: start: 20120112, end: 20120202

REACTIONS (4)
  - Diabetic ketoacidosis [Recovered/Resolved]
  - Pancreatitis [Recovering/Resolving]
  - Pneumonia [Recovered/Resolved]
  - Type 2 diabetes mellitus [Recovering/Resolving]
